FAERS Safety Report 15805328 (Version 1)
Quarter: 2019Q1

REPORT INFORMATION
  Report Type: Spontaneous
  Country: DE (occurrence: DE)
  Receive Date: 20190110
  Receipt Date: 20190110
  Transmission Date: 20190417
  Serious: Yes (Other)
  Sender: FDA-Public Use
  Company Number: DE-TEVA-2019-DE-996354

PATIENT
  Age: 41 Year
  Sex: Male

DRUGS (2)
  1. LAMOTRIGIN-RATIOPHARM TABLETTEN ZUR HERSTELLUNG EINER SUSPENSION [Suspect]
     Active Substance: LAMOTRIGINE
     Indication: EPILEPSY
     Dosage: 500 MG DAILY, FOR 8 YEARS
     Route: 048
  2. ATORVASTATIN RATIOPHARM 40 MG FILMTABLETTEN [Concomitant]
     Active Substance: ATORVASTATIN
     Dosage: 40 MILLIGRAM DAILY;

REACTIONS (3)
  - Drug-induced liver injury [Recovered/Resolved]
  - Gamma-glutamyltransferase [Recovered/Resolved]
  - Incorrect product formulation administered [Recovered/Resolved]
